FAERS Safety Report 9933999 (Version 2)
Quarter: 2015Q2

REPORT INFORMATION
  Report Type: Spontaneous
  Country: US (occurrence: US)
  Receive Date: 20140228
  Receipt Date: 20150501
  Transmission Date: 20150821
  Serious: No
  Sender: FDA-Public Use
  Company Number: US-ABBVIE-14P-163-1197098-00

PATIENT
  Age: 55 Year
  Sex: Male
  Weight: 95.34 kg

DRUGS (2)
  1. ANDROGEL [Suspect]
     Active Substance: TESTOSTERONE
     Dosage: 3 PUMPS DAILY
     Route: 061
  2. ANDROGEL [Suspect]
     Active Substance: TESTOSTERONE
     Indication: BLOOD TESTOSTERONE DECREASED
     Dosage: 2 PUMPS DAILY
     Route: 061

REACTIONS (7)
  - Drug ineffective [Recovering/Resolving]
  - Drug administered at inappropriate site [Not Recovered/Not Resolved]
  - Acne [Recovered/Resolved]
  - Rash generalised [Recovered/Resolved]
  - Application site rash [Recovered/Resolved]
  - Rash papular [Recovered/Resolved]
  - Blood testosterone decreased [Not Recovered/Not Resolved]

NARRATIVE: CASE EVENT DATE: 201311
